FAERS Safety Report 18311893 (Version 1)
Quarter: 2020Q3

REPORT INFORMATION
  Report Type: Spontaneous
  Country: US (occurrence: US)
  Receive Date: 20200925
  Receipt Date: 20200925
  Transmission Date: 20201103
  Serious: Yes (Hospitalization)
  Sender: FDA-Public Use
  Company Number: None

PATIENT
  Age: 39 Year

DRUGS (1)
  1. EMGALITY [Suspect]
     Active Substance: GALCANEZUMAB-GNLM
     Indication: MIGRAINE
     Dosage: ?          QUANTITY:2 INJECTION(S);OTHER FREQUENCY:ONCE (LOADING DOSE;?
     Route: 058

REACTIONS (4)
  - Hallucination [None]
  - Injection site reaction [None]
  - Nausea [None]
  - Panic attack [None]

NARRATIVE: CASE EVENT DATE: 20200923
